FAERS Safety Report 6340144-0 (Version None)
Quarter: 2009Q3

REPORT INFORMATION
  Report Type: 
  Country: None (occurrence: None)
  Receive Date: 20090902
  Receipt Date: 20090817
  Transmission Date: 20100115
  Serious: Yes (Hospitalization)
  Sender: FDA-Public Use
  Company Number: 2009AL002834

PATIENT
  Age: 59 Year
  Sex: Female

DRUGS (49)
  1. DIGOXIN [Suspect]
     Dosage: 0.125MG, DAILY, PO
     Route: 048
     Dates: start: 19970101, end: 20090618
  2. GLIPIZIDE [Concomitant]
  3. METFORMIN HCL [Concomitant]
  4. ZYRTEC [Concomitant]
  5. CIPROFLOXCIN [Concomitant]
  6. ZOCOR [Concomitant]
  7. PLAVIX [Concomitant]
  8. HUMALOG [Concomitant]
  9. LANTUS [Concomitant]
  10. DETROL [Concomitant]
  11. LISINOPRIL [Concomitant]
  12. FUROSEMIDE [Concomitant]
  13. AVAPRO [Concomitant]
  14. NOVALOG [Concomitant]
  15. ISOSORBIDE [Concomitant]
  16. CLOPIDOGREL [Concomitant]
  17. DICYCLOMINE [Concomitant]
  18. OMERPRAZOLE [Concomitant]
  19. IMDUR [Concomitant]
  20. KLONOPIN [Concomitant]
  21. BELLA [Concomitant]
  22. CEFTIN [Concomitant]
  23. CODEINE SULFATE [Concomitant]
  24. ORPHENADRINE CITRATE [Concomitant]
  25. PHENTERMINE HYDROCHLORIDE [Concomitant]
  26. PROPO-N-APA [Concomitant]
  27. ALPRAZOLAM [Concomitant]
  28. OXYBUTYNIN [Concomitant]
  29. RELION PEN [Concomitant]
  30. PERCOCET [Concomitant]
  31. CLONAZEPAM [Concomitant]
  32. NEXIUM [Concomitant]
  33. TYLENOL (CAPLET) [Concomitant]
  34. BENADRYL [Concomitant]
  35. NEURONTIN [Concomitant]
  36. HYDROMORPHONE [Concomitant]
  37. METOPROLOL TARTRATE [Concomitant]
  38. AMBIENT [Concomitant]
  39. PLAVIX [Concomitant]
  40. ASPIRIN [Concomitant]
  41. GABAPENTIN [Concomitant]
  42. DIOVAN [Concomitant]
  43. OXYBUTYNIN [Concomitant]
  44. AVAPRO [Concomitant]
  45. XALATAN [Concomitant]
  46. LIDODERM [Concomitant]
  47. LEVAQUIN [Concomitant]
  48. PANTOPRAZOLE SODIUM [Concomitant]
  49. ZOLPIDEM [Concomitant]

REACTIONS (36)
  - ANGINA UNSTABLE [None]
  - ANXIETY [None]
  - BACK PAIN [None]
  - BLOOD GLUCOSE INCREASED [None]
  - CHEST PAIN [None]
  - DEPRESSION [None]
  - DIABETIC NEPHROPATHY [None]
  - DIZZINESS [None]
  - DYSPNOEA EXERTIONAL [None]
  - FALL [None]
  - FEAR [None]
  - GAIT DISTURBANCE [None]
  - GASTROOESOPHAGEAL REFLUX DISEASE [None]
  - HEADACHE [None]
  - INTERVERTEBRAL DISC DEGENERATION [None]
  - INTERVERTEBRAL DISC PROTRUSION [None]
  - JOINT INJURY [None]
  - LIMB INJURY [None]
  - LOWER EXTREMITY MASS [None]
  - MULTIPLE INJURIES [None]
  - NAIL DISORDER [None]
  - NARCOLEPSY [None]
  - NERVOUSNESS [None]
  - NEUROPATHY PERIPHERAL [None]
  - OBESITY [None]
  - ONYCHALGIA [None]
  - OSTEOARTHRITIS [None]
  - PAIN [None]
  - PAIN IN EXTREMITY [None]
  - PERIPHERAL VASCULAR DISORDER [None]
  - RENAL DISORDER [None]
  - RENAL FAILURE [None]
  - SLEEP APNOEA SYNDROME [None]
  - TENDONITIS [None]
  - THERAPEUTIC AGENT TOXICITY [None]
  - VISION BLURRED [None]
